FAERS Safety Report 25732623 (Version 1)
Quarter: 2025Q3

REPORT INFORMATION
  Report Type: Spontaneous
  Country: US (occurrence: US)
  Receive Date: 20250827
  Receipt Date: 20250827
  Transmission Date: 20251020
  Serious: No
  Sender: ELI LILLY AND COMPANY
  Company Number: US-ELI_LILLY_AND_COMPANY-US202508012596

PATIENT
  Age: 73 Year

DRUGS (1)
  1. TRULICITY [Suspect]
     Active Substance: DULAGLUTIDE
     Indication: Product used for unknown indication
     Route: 065

REACTIONS (11)
  - Weight decreased [Unknown]
  - Dry mouth [Unknown]
  - Constipation [Unknown]
  - Dizziness [Unknown]
  - Tremor [Unknown]
  - Crying [Unknown]
  - Blood glucose decreased [Unknown]
  - Decreased appetite [Unknown]
  - Asthenia [Unknown]
  - Dyspepsia [Unknown]
  - Fatigue [Unknown]
